FAERS Safety Report 8877126 (Version 1)
Quarter: 2012Q4

REPORT INFORMATION
  Report Type: 
  Country: US (occurrence: US)
  Receive Date: 20121030
  Receipt Date: 20121030
  Transmission Date: 20130627
  Serious: No
  Sender: FDA-Public Use
  Company Number: US-B.I. PHARMACEUTICALS,INC./RIDGEFIELD-2012-BP-26185BP

PATIENT
  Sex: Female
  Weight: 59 kg

DRUGS (11)
  1. SPIRIVA [Suspect]
     Indication: CHRONIC OBSTRUCTIVE PULMONARY DISEASE
     Dosage: 18 mcg
     Route: 055
     Dates: start: 2007
  2. XANAX [Concomitant]
     Indication: ANXIETY
     Dosage: 4 mg
     Route: 048
     Dates: start: 2000
  3. XANAX [Concomitant]
     Indication: POST-TRAUMATIC STRESS DISORDER
  4. OXYMETAZOLINE HCL 0.1% OTC [Concomitant]
     Indication: NASAL CONGESTION
     Route: 045
     Dates: start: 2000
  5. OXYCODONE [Concomitant]
     Indication: PAIN
     Dosage: 90 mg
     Route: 048
     Dates: start: 201202
  6. SOMA [Concomitant]
     Indication: BACK PAIN
     Dosage: 650 mg
     Route: 048
     Dates: start: 2000
  7. MORPHINE [Concomitant]
     Indication: PAIN
     Dosage: 60 mg
     Route: 048
     Dates: start: 2000
  8. ALBUTEROL SULFATE [Concomitant]
     Indication: ASTHMA
     Route: 055
     Dates: start: 1996
  9. IPRATROPIUM BROMIDE [Concomitant]
     Indication: ASTHMA
     Route: 055
     Dates: start: 1996
  10. OXYCONTIN [Concomitant]
     Indication: PAIN
     Dosage: 80 mg
     Route: 048
     Dates: start: 2000
  11. ALBUTEROL INHALER [Concomitant]
     Indication: ASTHMA
     Route: 055
     Dates: start: 1996

REACTIONS (1)
  - Dyspnoea [Not Recovered/Not Resolved]
